FAERS Safety Report 5594606-4 (Version None)
Quarter: 2008Q1

REPORT INFORMATION
  Report Type: 
  Country: None (occurrence: None)
  Receive Date: 20080117
  Receipt Date: 20070105
  Transmission Date: 20080703
  Serious: No
  Sender: FDA-Public Use
  Company Number: US-ABBOTT-07P-163-0356185-00

PATIENT

DRUGS (1)
  1. TRICOR [Suspect]
     Indication: BLOOD CHOLESTEROL

REACTIONS (4)
  - ASTHENIA [None]
  - FATIGUE [None]
  - MUSCLE SPASMS [None]
  - PAIN IN EXTREMITY [None]
